FAERS Safety Report 12932590 (Version 1)
Quarter: 2016Q4

REPORT INFORMATION
  Report Type: Spontaneous
  Country: IT (occurrence: IT)
  Receive Date: 20161111
  Receipt Date: 20161111
  Transmission Date: 20170207
  Serious: Yes (Hospitalization)
  Sender: FDA-Public Use
  Company Number: PHHY2014IT175146

PATIENT
  Age: 28 Year
  Sex: Male

DRUGS (2)
  1. NELARABINE [Suspect]
     Active Substance: NELARABINE
     Indication: T-CELL TYPE ACUTE LEUKAEMIA
     Dosage: UNK
     Route: 065
  2. NELARABINE [Suspect]
     Active Substance: NELARABINE
     Dosage: UNK
     Route: 041
     Dates: start: 201307

REACTIONS (10)
  - Ataxia [Unknown]
  - Muscular weakness [Unknown]
  - Neurotoxicity [Recovered/Resolved]
  - Hypoaesthesia [Unknown]
  - Gait disturbance [Recovering/Resolving]
  - Gait disturbance [Unknown]
  - Bladder dysfunction [Unknown]
  - Decreased vibratory sense [Unknown]
  - Hyperreflexia [Unknown]
  - Dysstasia [Recovering/Resolving]
